FAERS Safety Report 7842229 (Version 4)
Quarter: 2012Q4

REPORT INFORMATION
  Report Type: 
  Country: US (occurrence: US)
  Receive Date: 20110304
  Receipt Date: 20120902
  Transmission Date: 20130627
  Serious: Yes (Hospitalization, Other)
  Sender: FDA-Public Use
  Company Number: US-AMGEN-USASP2011010746

PATIENT
  Age: 54 Year
  Sex: Male
  Weight: 69.84 kg

DRUGS (1)
  1. ENBREL [Suspect]
     Indication: RHEUMATOID ARTHRITIS
     Dosage: 50 mg, qwk
     Dates: start: 2002, end: 201102

REACTIONS (2)
  - Autoimmune thrombocytopenia [Not Recovered/Not Resolved]
  - Hepatitis C [Unknown]
